FAERS Safety Report 11982318 (Version 1)
Quarter: 2016Q1

REPORT INFORMATION
  Report Type: Spontaneous
  Country: US (occurrence: US)
  Receive Date: 20160201
  Receipt Date: 20160201
  Transmission Date: 20160526
  Serious: No
  Sender: FDA-Public Use
  Company Number: US-009507513-1601USA008076

PATIENT
  Age: 34 Year
  Sex: Male
  Weight: 88 kg

DRUGS (5)
  1. CISATRACURIUM BESYLATE. [Suspect]
     Active Substance: CISATRACURIUM BESYLATE
     Dosage: 10 MICROGRAM/KG/MIN
     Route: 040
  2. CISATRACURIUM BESYLATE. [Suspect]
     Active Substance: CISATRACURIUM BESYLATE
     Dosage: 5 MICROGRAM/KG/MIN
  3. ZEMURON [Suspect]
     Active Substance: ROCURONIUM BROMIDE
     Indication: NEUROMUSCULAR BLOCKING THERAPY
     Dosage: 10 MICROGRAM/KG/MIN
     Route: 040
  4. CISATRACURIUM BESYLATE. [Suspect]
     Active Substance: CISATRACURIUM BESYLATE
     Indication: NEUROMUSCULAR BLOCKING THERAPY
     Dosage: 2 MICROGRAM/KG/MIN
     Route: 040
  5. ZEMURON [Suspect]
     Active Substance: ROCURONIUM BROMIDE
     Dosage: 12 MICROGRAM/KG/MIN
     Route: 040

REACTIONS (2)
  - Tachyphylaxis [Not Recovered/Not Resolved]
  - Drug effect incomplete [Not Recovered/Not Resolved]
